FAERS Safety Report 10498486 (Version 5)
Quarter: 2015Q2

REPORT INFORMATION
  Report Type: Report from Study
  Country: US (occurrence: US)
  Receive Date: 20141006
  Receipt Date: 20150522
  Transmission Date: 20150821
  Serious: Yes (Other)
  Sender: FDA-Public Use
  Company Number: US-SA-2014SA108014

PATIENT
  Age: 60 Year
  Sex: Male

DRUGS (5)
  1. AUBAGIO [Suspect]
     Active Substance: TERIFLUNOMIDE
     Indication: MULTIPLE SCLEROSIS
     Route: 048
     Dates: end: 2015
  2. POISON IVY [Concomitant]
     Active Substance: TOXICODENDRON RADICANS LEAF
     Dosage: 6-7 TIMES PER YEAR
  3. POISON IVY [Concomitant]
     Active Substance: TOXICODENDRON RADICANS LEAF
     Dosage: 6-7 TIMES PER YEAR
     Dates: start: 2014, end: 2014
  4. AUBAGIO [Suspect]
     Active Substance: TERIFLUNOMIDE
     Indication: MULTIPLE SCLEROSIS
     Route: 048
     Dates: start: 20140609
  5. AUBAGIO [Suspect]
     Active Substance: TERIFLUNOMIDE
     Indication: MULTIPLE SCLEROSIS
     Route: 048
     Dates: start: 201503

REACTIONS (16)
  - Acne [Recovered/Resolved]
  - Arthropod bite [Unknown]
  - Fall [Unknown]
  - Dermatitis contact [Unknown]
  - Urinary tract disorder [Unknown]
  - Hyperglycaemia [Unknown]
  - Muscular weakness [Unknown]
  - Pain in extremity [Unknown]
  - Scar [Unknown]
  - Skin ulcer [Unknown]
  - Impaired healing [Unknown]
  - Skin irritation [Unknown]
  - Hypoaesthesia [Unknown]
  - Type 2 diabetes mellitus [Unknown]
  - Skin discolouration [Unknown]
  - Drug dose omission [Unknown]

NARRATIVE: CASE EVENT DATE: 20140818
